FAERS Safety Report 9329056 (Version 1)
Quarter: 2013Q2

REPORT INFORMATION
  Report Type: Spontaneous
  Country: US (occurrence: US)
  Receive Date: 20130604
  Receipt Date: 20130604
  Transmission Date: 20140414
  Serious: Yes (Hospitalization)
  Sender: FDA-Public Use
  Company Number: US-SANOFI-AVENTIS-2013SA021666

PATIENT
  Sex: 0

DRUGS (2)
  1. LANTUS [Suspect]
     Dosage: DOSE:10 UNIT(S)
     Route: 042
     Dates: start: 201302, end: 201302
  2. HUMULIN [Suspect]
     Route: 065
     Dates: start: 201302

REACTIONS (2)
  - Blood glucose increased [Unknown]
  - Drug administration error [Unknown]
